FAERS Safety Report 7522710-X (Version None)
Quarter: 2011Q2

REPORT INFORMATION
  Report Type: 
  Country: None (occurrence: None)
  Receive Date: 20110603
  Receipt Date: 20110201
  Transmission Date: 20111010
  Serious: Yes (Hospitalization, Other)
  Sender: FDA-Public Use
  Company Number: US-BAYER-201035819NA

PATIENT
  Age: 50 Year
  Sex: Female

DRUGS (18)
  1. FLONASE [Concomitant]
     Indication: MULTIPLE ALLERGIES
     Dosage: 50 ?G, UNK
     Route: 048
     Dates: start: 20060101
  2. LEVAQUIN [Concomitant]
     Dosage: UNK
     Route: 048
     Dates: start: 20060516
  3. PEPCID [Concomitant]
     Dosage: 20 MG, UNK
     Route: 048
  4. YASMIN [Suspect]
     Indication: PREMENSTRUAL SYNDROME
  5. DROSPIRENONE AND ETHINYL ESTRADIOL [Suspect]
     Indication: CONTRACEPTION
     Dosage: UNK UNK, UNK
     Route: 048
     Dates: start: 20050101, end: 20100428
  6. ACIPHEX [Concomitant]
     Indication: GASTROOESOPHAGEAL REFLUX DISEASE
     Dosage: 10 MG, UNK
     Route: 048
     Dates: start: 20060101
  7. ZYRTEC [Concomitant]
     Indication: MULTIPLE ALLERGIES
     Dosage: 10 MG, UNK
     Route: 048
     Dates: start: 20060101
  8. CLARITIN [Concomitant]
     Dosage: 10 MG, UNK
     Route: 048
  9. KLONOPIN [Concomitant]
     Indication: DEPRESSION
     Dosage: 0.5 MG, UNK
     Route: 048
     Dates: start: 20070901
  10. HEPARIN [Concomitant]
     Route: 058
  11. YASMIN [Suspect]
     Indication: CONTRACEPTION
     Route: 048
     Dates: start: 20050101, end: 20100428
  12. ULTRACET [Concomitant]
     Route: 048
  13. MULTI-VITAMIN [Concomitant]
     Dosage: UNK UNK, QD
     Dates: start: 19800101
  14. PROZAC [Concomitant]
     Indication: ANXIETY
     Dosage: 20 MG, UNK
     Route: 048
     Dates: start: 20070901
  15. ASPIRIN [Concomitant]
     Dosage: 81 MG, UNK
     Route: 048
  16. DROSPIRENONE AND ETHINYL ESTRADIOL [Suspect]
     Indication: PREMENSTRUAL SYNDROME
  17. COZAAR [Concomitant]
     Indication: HYPERTENSION
     Dosage: 50 MG, UNK
     Route: 048
     Dates: start: 20090101
  18. TRAMADOL HYDROCHLORIDE [Concomitant]
     Indication: PAIN MANAGEMENT
     Dosage: 50 MG, UNK
     Route: 048
     Dates: start: 20060101

REACTIONS (8)
  - AMNESIA [None]
  - SPEECH DISORDER [None]
  - DEPRESSION [None]
  - MOTOR DYSFUNCTION [None]
  - GALLBLADDER DISORDER [None]
  - DISTURBANCE IN ATTENTION [None]
  - CEREBROVASCULAR ACCIDENT [None]
  - MUSCULAR WEAKNESS [None]
